FAERS Safety Report 5895570-0 (Version None)
Quarter: 2008Q3

REPORT INFORMATION
  Report Type: 
  Country: None (occurrence: None)
  Receive Date: 20080924
  Receipt Date: 20080507
  Transmission Date: 20090109
  Serious: No
  Sender: FDA-Public Use
  Company Number: US-ASTRAZENECA-2006UW07992

PATIENT
  Age: 329 Month
  Sex: Female
  Weight: 142 kg

DRUGS (9)
  1. SEROQUEL [Suspect]
     Indication: SCHIZOPHRENIA
     Route: 048
     Dates: start: 20020401
  2. SEROQUEL [Suspect]
     Indication: DEPRESSION
     Route: 048
     Dates: start: 20020401
  3. SEROQUEL [Suspect]
     Route: 048
     Dates: start: 20020401
  4. SEROQUEL [Suspect]
     Route: 048
     Dates: start: 20020401
  5. ABILIFY [Concomitant]
  6. CLOZARIL [Concomitant]
  7. GEODON [Concomitant]
     Dates: start: 20020101
  8. RISPERDAL [Concomitant]
     Dates: start: 20050101
  9. EFFEXOR [Concomitant]
     Dates: start: 20070101

REACTIONS (4)
  - BLOOD CHOLESTEROL INCREASED [None]
  - BLOOD TRIGLYCERIDES INCREASED [None]
  - DIABETES MELLITUS [None]
  - OBESITY [None]
